FAERS Safety Report 25737059 (Version 1)
Quarter: 2025Q3

REPORT INFORMATION
  Report Type: Spontaneous
  Country: KZ (occurrence: KZ)
  Receive Date: 20250828
  Receipt Date: 20250828
  Transmission Date: 20251020
  Serious: Yes (Other)
  Sender: PFIZER
  Company Number: KZ-PFIZER INC-PV202500102670

PATIENT
  Age: 69 Year

DRUGS (1)
  1. LORBRENA [Suspect]
     Active Substance: LORLATINIB
     Indication: Non-small cell lung cancer
     Dosage: 100 MG, DAILY
     Route: 048
     Dates: start: 20230116

REACTIONS (1)
  - Hydrothorax [Recovered/Resolved]

NARRATIVE: CASE EVENT DATE: 20240101
